FAERS Safety Report 22055055 (Version 2)
Quarter: 2023Q1

REPORT INFORMATION
  Report Type: Spontaneous
  Country: US (occurrence: US)
  Receive Date: 20230302
  Receipt Date: 20230302
  Transmission Date: 20230417
  Serious: Yes (Hospitalization)
  Sender: FDA-Public Use
  Company Number: US-ALKERMES INC.-ALK-2023-000851

PATIENT
  Age: 37 Year
  Sex: Male

DRUGS (2)
  1. ARISTADA [Suspect]
     Active Substance: ARIPIPRAZOLE LAUROXIL
     Indication: Schizoaffective disorder
     Dosage: 662 MILLIGRAM, QMO
     Route: 030
     Dates: start: 20230213
  2. ARISTADA INITIO [Suspect]
     Active Substance: ARIPIPRAZOLE LAUROXIL
     Indication: Schizoaffective disorder
     Dosage: 675 MILLIGRAM, ONE TIME DOSE
     Route: 030
     Dates: start: 20230210, end: 20230210

REACTIONS (4)
  - Agitation [Unknown]
  - Paranoia [Unknown]
  - Delusional perception [Unknown]
  - Off label use [None]

NARRATIVE: CASE EVENT DATE: 20230201
